FAERS Safety Report 9327095 (Version 3)
Quarter: 2013Q3

REPORT INFORMATION
  Report Type: Spontaneous
  Country: US (occurrence: None)
  Receive Date: 20130530
  Receipt Date: 20130815
  Transmission Date: 20140515
  Serious: Yes (Other)
  Sender: FDA-Public Use
  Company Number: ADR-2013-00804

PATIENT
  Age: 30 Year
  Sex: Female

DRUGS (1)
  1. LIORESAL INTRATHECAL (BACLOFEN INJECTION) 2000 MCG/ML [Suspect]
     Indication: MUSCLE SPASTICITY
     Dosage: 270.4 G/DAY

REACTIONS (8)
  - Device related infection [None]
  - Device malfunction [None]
  - Meningitis [None]
  - Shunt infection [None]
  - Intestinal perforation [None]
  - Citrobacter infection [None]
  - Klebsiella infection [None]
  - CSF culture positive [None]
